FAERS Safety Report 8500203-0 (Version None)
Quarter: 2012Q3

REPORT INFORMATION
  Report Type: 
  Country: None (occurrence: None)
  Receive Date: 20120710
  Receipt Date: 20120706
  Transmission Date: 20120928
  Serious: Yes (Other)
  Sender: FDA-Public Use
  Company Number: CA-PFIZER INC-2012104571

PATIENT
  Age: 59 Year
  Sex: Male

DRUGS (6)
  1. ACETAMINOPHEN [Concomitant]
     Indication: PAIN
     Dosage: 1000 MG, 4X/DAY, EVERY 6 HOURS, AS NEEDED
     Route: 048
     Dates: start: 20090219
  2. OLANZAPINE [Concomitant]
     Indication: BIPOLAR DISORDER
     Dosage: 10 MG, AT BEDTIME
     Route: 048
     Dates: start: 20110202
  3. VARENICLINE TARTRATE [Suspect]
     Indication: SMOKING CESSATION THERAPY
     Dosage: 0.5 MG, 1X/DAY
     Route: 048
     Dates: start: 20120419, end: 20120421
  4. DIVALPROEX SODIUM [Concomitant]
     Indication: BIPOLAR DISORDER
     Dosage: 750 MG, 2X/DAY
     Route: 048
     Dates: start: 20110202
  5. VARENICLINE TARTRATE [Suspect]
     Dosage: 0.5 MG, 2X/DAY
     Route: 048
     Dates: start: 20120422, end: 20120426
  6. LITHIUM CARBONATE [Concomitant]
     Indication: BIPOLAR DISORDER
     Dosage: 900 MG, AT BEDTIME
     Route: 048
     Dates: start: 20110202

REACTIONS (5)
  - DYSPNOEA [None]
  - THROAT TIGHTNESS [None]
  - MUSCULOSKELETAL CHEST PAIN [None]
  - ANXIETY [None]
  - DRUG HYPERSENSITIVITY [None]
